FAERS Safety Report 5640540-0 (Version None)
Quarter: 2008Q1

REPORT INFORMATION
  Report Type: 
  Country: None (occurrence: None)
  Receive Date: 20080225
  Receipt Date: 20080211
  Transmission Date: 20080703
  Serious: Yes (Hospitalization)
  Sender: FDA-Public Use
  Company Number: 2008-171093-NL

PATIENT
  Age: 42 Year
  Sex: Female

DRUGS (1)
  1. ETONOGESTREL (BATCH #: 910540/887289) [Suspect]
     Dosage: DF
     Dates: start: 20070607, end: 20080117

REACTIONS (2)
  - CIRCULATORY COLLAPSE [None]
  - MENORRHAGIA [None]
